APPROVED DRUG PRODUCT: GLYBURIDE
Active Ingredient: GLYBURIDE
Strength: 2.5MG
Dosage Form/Route: TABLET;ORAL
Application: A203581 | Product #002
Applicant: CHARTWELL RX SCIENCES LLC
Approved: Apr 14, 2016 | RLD: No | RS: No | Type: DISCN